FAERS Safety Report 4656676-7 (Version None)
Quarter: 2005Q2

REPORT INFORMATION
  Report Type: 
  Country: None (occurrence: None)
  Receive Date: 20050506
  Receipt Date: 20050408
  Transmission Date: 20051028
  Serious: Yes (Hospitalization)
  Sender: FDA-Public Use
  Company Number: 2005057554

PATIENT
  Age: 65 Year
  Sex: Male

DRUGS (4)
  1. SOLU-MEDROL [Suspect]
     Indication: ILL-DEFINED DISORDER
     Dosage: 70 MG (1 D), INTRAVENOUS
     Route: 042
     Dates: start: 20050117
  2. CISPLATIN [Concomitant]
  3. TEMOZOLOMIDE (TEMOZOLOMIDE) [Concomitant]
  4. ONDANSETRON HCL [Concomitant]

REACTIONS (3)
  - CATHETER RELATED INFECTION [None]
  - LOCALISED INFECTION [None]
  - STAPHYLOCOCCAL INFECTION [None]
